FAERS Safety Report 7539315-7 (Version None)
Quarter: 2011Q2

REPORT INFORMATION
  Report Type: 
  Country: None (occurrence: None)
  Receive Date: 20110610
  Receipt Date: 20110603
  Transmission Date: 20111010
  Serious: Yes (Other)
  Sender: FDA-Public Use
  Company Number: IT-ROXANE LABORATORIES, INC.-2011-RO-00772RO

PATIENT
  Age: 46 Year
  Sex: Male

DRUGS (5)
  1. LITHIUM CARBONATE [Suspect]
     Indication: OFF LABEL USE
     Dosage: 300 MG
  2. ALPHA-TOCOPHEROL CAP [Suspect]
     Indication: AMYOTROPHIC LATERAL SCLEROSIS
     Dosage: 900 MG
  3. LITHIUM CARBONATE [Suspect]
     Indication: AMYOTROPHIC LATERAL SCLEROSIS
     Dosage: 150 MG
  4. RILUZOLE [Suspect]
     Indication: AMYOTROPHIC LATERAL SCLEROSIS
     Dosage: 100 MG
  5. TRIHEXYPHENIDYL HCL [Suspect]
     Indication: AMYOTROPHIC LATERAL SCLEROSIS
     Dosage: 4 MG

REACTIONS (1)
  - PARKINSONISM [None]
